FAERS Safety Report 4837035-0 (Version None)
Quarter: 2005Q4

REPORT INFORMATION
  Report Type: 
  Country: None (occurrence: None)
  Receive Date: 20051124
  Receipt Date: 20051111
  Transmission Date: 20060501
  Serious: Yes (Other)
  Sender: FDA-Public Use
  Company Number: PHBS2005US16644

PATIENT
  Age: 28 Year
  Sex: Female

DRUGS (11)
  1. CLOZAPINE [Suspect]
     Indication: PSYCHOTIC DISORDER
     Dosage: 450  MG/D
     Route: 065
  2. CLOZAPINE [Suspect]
     Dosage: 350 MG/D
     Route: 065
  3. CLOZAPINE [Suspect]
     Dosage: 375 MG/D
     Route: 065
  4. CLOZAPINE [Suspect]
     Dosage: 250 MG/D
     Route: 065
  5. CLOZAPINE [Suspect]
     Dosage: 225 MG/D
     Route: 065
  6. CLOZAPINE [Suspect]
     Dosage: 325 MG/D
     Route: 065
  7. CLOZAPINE [Suspect]
     Dosage: 300 MG/D
     Route: 065
  8. CLOZAPINE [Suspect]
     Dosage: 200 MG/D
     Route: 065
  9. ARIPIPRAZOLE [Concomitant]
  10. LITHIUM [Concomitant]
  11. NICOTINE [Suspect]
     Route: 065

REACTIONS (14)
  - ANTIPSYCHOTIC DRUG LEVEL INCREASED [None]
  - CONFUSIONAL STATE [None]
  - DELIRIUM [None]
  - DIZZINESS [None]
  - DRUG TOXICITY [None]
  - DRY MOUTH [None]
  - FLAT AFFECT [None]
  - MUSCLE SPASMS [None]
  - PUPIL FIXED [None]
  - PUPILLARY REFLEX IMPAIRED [None]
  - SALIVARY HYPERSECRETION [None]
  - SEDATION [None]
  - VISION BLURRED [None]
  - WEIGHT INCREASED [None]
